FAERS Safety Report 9271118 (Version 3)
Quarter: 2013Q2

REPORT INFORMATION
  Report Type: Spontaneous
  Country: RU (occurrence: RU)
  Receive Date: 20130506
  Receipt Date: 20130619
  Transmission Date: 20140414
  Serious: Yes (Other)
  Sender: FDA-Public Use
  Company Number: PHHY2013RU042432

PATIENT
  Age: 58 Year
  Sex: Female

DRUGS (3)
  1. FEMARA [Suspect]
     Indication: BREAST CANCER
     Dosage: UNK UKN, UNK
     Dates: start: 20100201
  2. FEMARA [Suspect]
     Dosage: UNK UKN, QD
     Route: 048
     Dates: start: 20130315
  3. LETROZOLE TEVA [Suspect]
     Indication: BREAST CANCER
     Dosage: UNK UKN, UNK

REACTIONS (4)
  - Gastritis erosive [Not Recovered/Not Resolved]
  - Chest pain [Recovering/Resolving]
  - Syncope [Recovering/Resolving]
  - Arrhythmia [Recovering/Resolving]
